FAERS Safety Report 7289167-8 (Version None)
Quarter: 2011Q1

REPORT INFORMATION
  Report Type: 
  Country: None (occurrence: None)
  Receive Date: 20110211
  Receipt Date: 20110203
  Transmission Date: 20110831
  Serious: Yes (Other)
  Sender: FDA-Public Use
  Company Number: US-JNJFOC-20110202522

PATIENT
  Age: 26 Year
  Sex: Male

DRUGS (3)
  1. TOPAMAX [Suspect]
     Route: 048
  2. TOPAMAX [Suspect]
     Indication: CONVULSION
     Route: 048
  3. TOPAMAX [Suspect]
     Route: 048

REACTIONS (5)
  - SELF INJURIOUS BEHAVIOUR [None]
  - ANGER [None]
  - SUICIDAL IDEATION [None]
  - AGGRESSION [None]
  - WEIGHT INCREASED [None]
